FAERS Safety Report 5877560-7 (Version None)
Quarter: 2008Q3

REPORT INFORMATION
  Report Type: 
  Country: None (occurrence: None)
  Receive Date: 20080911
  Receipt Date: 20080903
  Transmission Date: 20090109
  Serious: Yes (Other)
  Sender: FDA-Public Use
  Company Number: PHHY2008IL20119

PATIENT
  Age: 27 Year
  Sex: Female

DRUGS (1)
  1. HYPOTEARS (NVO) [Suspect]

REACTIONS (3)
  - EYE HAEMORRHAGE [None]
  - EYE PAIN [None]
  - INJURY CORNEAL [None]
